FAERS Safety Report 11195101 (Version 1)
Quarter: 2015Q2

REPORT INFORMATION
  Report Type: Spontaneous
  Country: US (occurrence: None)
  Receive Date: 20150615
  Receipt Date: 20150615
  Transmission Date: 20150821
  Serious: Yes (Life-Threatening, Hospitalization, Disabling)
  Sender: FDA-Public Use
  Company Number: None

PATIENT
  Age: 58 Year
  Sex: Female
  Weight: 67.59 kg

DRUGS (4)
  1. LEVAFLOXACIN 50MG MR READY^S PHARMACEUTICALS [Suspect]
     Active Substance: LEVOFLOXACIN
     Indication: OROPHARYNGEAL PAIN
     Dosage: 500 MG, 10 DAY
     Route: 048
     Dates: start: 20150101, end: 20150117
  2. ATROVASTATIN [Concomitant]
     Active Substance: ATORVASTATIN CALCIUM
  3. EFFEXOR XR [Concomitant]
     Active Substance: VENLAFAXINE HYDROCHLORIDE
  4. VITAMIN D [Concomitant]
     Active Substance: CHOLECALCIFEROL

REACTIONS (6)
  - Paraesthesia [None]
  - Paralysis [None]
  - Myositis [None]
  - Muscular weakness [None]
  - Skin exfoliation [None]
  - Myalgia [None]

NARRATIVE: CASE EVENT DATE: 20150120
